FAERS Safety Report 13929977 (Version 1)
Quarter: 2017Q3

REPORT INFORMATION
  Report Type: Spontaneous
  Country: JP (occurrence: JP)
  Receive Date: 20170901
  Receipt Date: 20170901
  Transmission Date: 20171127
  Serious: Yes (Hospitalization)
  Sender: FDA-Public Use
  Company Number: JP-JNJFOC-20170829009

PATIENT
  Age: 60 Year
  Sex: Male

DRUGS (8)
  1. LIPIDIL [Concomitant]
     Active Substance: FENOFIBRATE
     Route: 048
  2. EQUA [Concomitant]
     Active Substance: VILDAGLIPTIN
     Dosage: END DATE: END OF JUN-2017
     Route: 048
     Dates: end: 201706
  3. VOGLIBOSE [Concomitant]
     Active Substance: VOGLIBOSE
     Dosage: END DATE:END OF JUN-2017
     Route: 048
     Dates: start: 20170626, end: 201706
  4. ACTOS [Concomitant]
     Active Substance: PIOGLITAZONE HYDROCHLORIDE
     Dosage: END DATE:END OF JUN-2017
     Route: 048
     Dates: end: 201706
  5. TANATRIL [Suspect]
     Active Substance: IMIDAPRIL
     Indication: PRODUCT USED FOR UNKNOWN INDICATION
     Route: 048
  6. GLUFAST [Concomitant]
     Active Substance: MITIGLINIDE
     Dosage: END DATE:END OF JUN-2017
     Route: 048
     Dates: start: 20170626, end: 201706
  7. ALVESCO [Concomitant]
     Active Substance: CICLESONIDE
     Route: 055
  8. CANAGLU [Suspect]
     Active Substance: CANAGLIFLOZIN
     Indication: PRODUCT USED FOR UNKNOWN INDICATION
     Dosage: THE DRUG WAS STOPPED ON AN UNSPECIFIED DATE IN THE END OF JUN-2017
     Route: 048
     Dates: start: 20170626, end: 201706

REACTIONS (1)
  - Cardiovascular disorder [Recovered/Resolved]

NARRATIVE: CASE EVENT DATE: 201706
